FAERS Safety Report 17953239 (Version 1)
Quarter: 2020Q2

REPORT INFORMATION
  Report Type: Spontaneous
  Country: FR (occurrence: FR)
  Receive Date: 20200627
  Receipt Date: 20200627
  Transmission Date: 20200714
  Serious: Yes (Hospitalization, Disabling, Congenital Anomaly, Other)
  Sender: FDA-Public Use
  Company Number: NVSC2020FR178739

PATIENT
  Age: 65 Year
  Sex: Female
  Weight: 93 kg

DRUGS (11)
  1. ADALIMUMAB [Suspect]
     Active Substance: ADALIMUMAB
     Indication: COLITIS ULCERATIVE
     Dosage: 40 MG, QW
     Route: 058
  2. TAREG [Concomitant]
     Active Substance: VALSARTAN
     Indication: HYPERTENSION
     Dosage: UNK
     Route: 048
     Dates: start: 2006
  3. SELOKEN [Concomitant]
     Active Substance: METOPROLOL
     Indication: HYPERTENSION
     Dosage: UNK
     Route: 048
     Dates: start: 2006
  4. ADALIMUMAB [Suspect]
     Active Substance: ADALIMUMAB
     Dosage: 40 MG, BIW
     Route: 058
     Dates: start: 20170602, end: 20190401
  5. PROZAC [Concomitant]
     Active Substance: FLUOXETINE HYDROCHLORIDE
     Indication: ANTIDEPRESSANT THERAPY
     Dosage: UNK
     Route: 048
     Dates: start: 20161205
  6. STELARA [Concomitant]
     Active Substance: USTEKINUMAB
     Indication: COLITIS ULCERATIVE
     Dosage: 90 MG, Q2MO
     Route: 058
     Dates: start: 20190711
  7. OGAST [Concomitant]
     Active Substance: LANSOPRAZOLE
     Indication: GASTROOESOPHAGEAL REFLUX DISEASE
     Dosage: UNK
     Route: 048
     Dates: start: 2006
  8. STILNOX [Concomitant]
     Active Substance: ZOLPIDEM TARTRATE
     Indication: ANTIDEPRESSANT THERAPY
     Dosage: UNK
     Route: 048
     Dates: start: 20161205
  9. NOVORAPID [Concomitant]
     Active Substance: INSULIN ASPART
     Indication: DIABETES MELLITUS
     Dosage: 3 DF, QD (10 U/ML)
     Route: 058
     Dates: start: 1996
  10. LEVOTHYROXINE. [Concomitant]
     Active Substance: LEVOTHYROXINE
     Indication: THYROIDECTOMY
     Dosage: UNK
     Route: 048
     Dates: start: 20161205
  11. LANTUS [Concomitant]
     Active Substance: INSULIN GLARGINE
     Indication: DIABETES MELLITUS
     Dosage: 30 U/ML
     Route: 058
     Dates: start: 1996

REACTIONS (7)
  - Cerebellar syndrome [Recovered/Resolved with Sequelae]
  - Nervous system disorder [Not Recovered/Not Resolved]
  - Hypoaesthesia [Recovered/Resolved with Sequelae]
  - Dehydration [Recovered/Resolved]
  - Paraesthesia [Recovered/Resolved with Sequelae]
  - Dizziness [Recovered/Resolved]
  - Renal failure [Recovered/Resolved]

NARRATIVE: CASE EVENT DATE: 20190410
